FAERS Safety Report 9500268 (Version 1)
Quarter: 2013Q3

REPORT INFORMATION
  Report Type: Spontaneous
  Country: US (occurrence: None)
  Receive Date: 20130904
  Receipt Date: 20130904
  Transmission Date: 20140515
  Serious: No
  Sender: FDA-Public Use
  Company Number: None

PATIENT
  Age: 74 Day
  Sex: Female
  Weight: 56.7 kg

DRUGS (1)
  1. PROLIA [Suspect]
     Indication: OSTEOPOROSIS

REACTIONS (6)
  - Gait disturbance [None]
  - Bone pain [None]
  - Arthralgia [None]
  - Tooth extraction [None]
  - Jaw disorder [None]
  - Impaired healing [None]
